FAERS Safety Report 6716240-2 (Version None)
Quarter: 2010Q2

REPORT INFORMATION
  Report Type: 
  Country: None (occurrence: None)
  Receive Date: 20100507
  Receipt Date: 20100506
  Transmission Date: 20101027
  Serious: Yes (Other)
  Sender: FDA-Public Use
  Company Number: US-BRISTOL-MYERS SQUIBB COMPANY-15010473

PATIENT
  Age: 53 Year
  Sex: Male

DRUGS (8)
  1. REYATAZ [Suspect]
     Indication: HIV INFECTION
     Route: 048
     Dates: start: 20080923
  2. EPZICOM [Suspect]
     Indication: HIV INFECTION
     Route: 048
     Dates: start: 20080923
  3. EPIVIR [Concomitant]
     Dates: start: 20080923
  4. ZIAGEN [Concomitant]
  5. TESTOSTERONE [Concomitant]
  6. ASPIRIN [Concomitant]
  7. LOVAZA [Concomitant]
  8. VIAGRA [Concomitant]

REACTIONS (1)
  - RENAL TUBULAR NECROSIS [None]
